FAERS Safety Report 9754027 (Version 2)
Quarter: 2013Q4

REPORT INFORMATION
  Report Type: Spontaneous
  Country: US (occurrence: US)
  Receive Date: 20131213
  Receipt Date: 20131213
  Transmission Date: 20140711
  Serious: Yes (Hospitalization)
  Sender: FDA-Public Use
  Company Number: US-TEVA-406680USA

PATIENT
  Age: 32 Year
  Sex: Female
  Weight: 65.38 kg

DRUGS (1)
  1. PARAGARD 380A [Suspect]
     Indication: CONTRACEPTION
     Route: 015
     Dates: start: 2012, end: 20130514

REACTIONS (5)
  - Pregnancy with contraceptive device [Recovered/Resolved]
  - Abortion spontaneous [Recovered/Resolved]
  - Drug ineffective [Unknown]
  - Uterine haemorrhage [Unknown]
  - Device expulsion [Recovered/Resolved]
